FAERS Safety Report 9992051 (Version 2)
Quarter: 2014Q1

REPORT INFORMATION
  Report Type: Spontaneous
  Country: BE (occurrence: BE)
  Receive Date: 20140310
  Receipt Date: 20140310
  Transmission Date: 20141002
  Serious: Yes (Life-Threatening)
  Sender: FDA-Public Use
  Company Number: BE-ABBVIE-14P-013-1208301-00

PATIENT
  Age: 42 Year
  Sex: Male

DRUGS (1)
  1. HUMIRA [Suspect]
     Indication: PSORIASIS
     Dates: start: 20120423, end: 20140101

REACTIONS (1)
  - Pulmonary sarcoidosis [Unknown]
